FAERS Safety Report 20214672 (Version 1)
Quarter: 2021Q4

REPORT INFORMATION
  Report Type: Spontaneous
  Country: BE (occurrence: BE)
  Receive Date: 20211221
  Receipt Date: 20211221
  Transmission Date: 20220304
  Serious: Yes (Other)
  Sender: FDA-Public Use
  Company Number: BE-JNJFOC-20211230025

PATIENT
  Sex: Female

DRUGS (10)
  1. HUMIRA [Suspect]
     Active Substance: ADALIMUMAB
     Indication: Crohn^s disease
     Dosage: STOP DUE TO INSUFFICIENT EFFECT DESPITE DOSE OPTIMIZATION
     Route: 058
  2. REMICADE [Suspect]
     Active Substance: INFLIXIMAB
     Indication: Crohn^s disease
     Route: 042
     Dates: start: 200505, end: 201302
  3. REMICADE [Suspect]
     Active Substance: INFLIXIMAB
     Dosage: FINALLY REQUIRING 10 MG/KG EVERY 4 WEEKS
     Route: 042
     Dates: start: 201609, end: 202009
  4. FLAGYL [Suspect]
     Active Substance: METRONIDAZOLE\METRONIDAZOLE HYDROCHLORIDE
     Indication: Crohn^s disease
     Dosage: IN COMBINATION WITH THALIDOMIDE
     Route: 065
     Dates: start: 20140805
  5. STELARA [Suspect]
     Active Substance: USTEKINUMAB
     Indication: Crohn^s disease
     Route: 058
     Dates: start: 20210806, end: 2021
  6. STELARA [Suspect]
     Active Substance: USTEKINUMAB
     Route: 058
     Dates: start: 20211206
  7. THALIDOMIDE [Suspect]
     Active Substance: THALIDOMIDE
     Indication: Crohn^s disease
     Dosage: IN COMBINATION WITH FLAGYL
     Route: 065
     Dates: start: 20140805, end: 20160526
  8. THALIDOMIDE [Suspect]
     Active Substance: THALIDOMIDE
     Route: 065
     Dates: start: 202009, end: 20210624
  9. DAPSONE [Suspect]
     Active Substance: DAPSONE
     Indication: Crohn^s disease
     Dosage: IN COMBINATION WITH IMURAN
     Route: 065
     Dates: start: 201405
  10. IMURAN [Suspect]
     Active Substance: AZATHIOPRINE
     Indication: Crohn^s disease
     Dosage: IN COMBINATION WITH DAPSONE
     Route: 065
     Dates: start: 201405

REACTIONS (8)
  - Drug ineffective [Unknown]
  - Product use issue [Unknown]
  - Off label use [Unknown]
  - Cheilitis granulomatosa [Unknown]
  - Hormone level abnormal [Unknown]
  - Cutaneous vasculitis [Unknown]
  - Crohn^s disease [Unknown]
  - Therapeutic product effect incomplete [Unknown]

NARRATIVE: CASE EVENT DATE: 20130201
